FAERS Safety Report 8042182 (Version 3)
Quarter: 2012Q4

REPORT INFORMATION
  Report Type: 
  Country: US (occurrence: US)
  Receive Date: 20110718
  Receipt Date: 20121023
  Transmission Date: 20130627
  Serious: Yes (Death, Hospitalization)
  Sender: FDA-Public Use
  Company Number: US-GLAXOSMITHKLINE-A0936917A

PATIENT
  Age: 66 Year
  Sex: Male

DRUGS (1)
  1. AVANDAMET [Suspect]
     Indication: DIABETES MELLITUS
     Route: 048
     Dates: start: 200511, end: 20090605

REACTIONS (4)
  - Acute pulmonary oedema [Fatal]
  - Aortic stenosis [Unknown]
  - Cardiac failure [Unknown]
  - Myocardial infarction [Unknown]
